FAERS Safety Report 4776963-1 (Version None)
Quarter: 2005Q3

REPORT INFORMATION
  Report Type: 
  Country: None (occurrence: None)
  Receive Date: 20050915
  Receipt Date: 20050830
  Transmission Date: 20060218
  Serious: Yes (Death)
  Sender: FDA-Public Use
  Company Number: 217671

PATIENT
  Age: 51 Year
  Sex: Male
  Weight: 50 kg

DRUGS (8)
  1. AVASTIN [Suspect]
     Indication: COLON CANCER METASTATIC
     Dosage: 375 MG, Q3W, INTRAVENOUS
     Route: 042
     Dates: start: 20050617, end: 20050810
  2. CAPECITABINE (CAPECITABINE) [Suspect]
     Indication: COLON CANCER METASTATIC
     Dosage: 2000 MG, QD
     Dates: start: 20050617
  3. VITAMIN B COMPLEX (VITAMIN B COMPLEX) [Concomitant]
  4. PROXYVON (ACETAMINOPHEN, PROPOXYPHENE HYDROCHLORIDE) [Concomitant]
  5. MUCAINE (OXETHAZAINE, MAGNESIUM HYDROXICE, ALMUMINUM  HYDROXIDE) [Concomitant]
  6. DOMPERIDONE (DOMPERIDONE) [Concomitant]
  7. CREMAFFIN (MAGNESIUM HYDROXIDE) [Concomitant]
  8. MORPHINE [Concomitant]

REACTIONS (1)
  - DEATH [None]
